FAERS Safety Report 8533387-9 (Version None)
Quarter: 2012Q3

REPORT INFORMATION
  Report Type: 
  Country: None (occurrence: None)
  Receive Date: 20120724
  Receipt Date: 20120720
  Transmission Date: 20120928
  Serious: Yes (Hospitalization, Other)
  Sender: FDA-Public Use
  Company Number: PHFR2012IE002695

PATIENT
  Sex: Male

DRUGS (2)
  1. CLOZARIL [Suspect]
     Indication: SCHIZOPHRENIA
     Dosage: 600 MG, (200 MG MANE AND 400 MG NOCTE)
     Route: 048
     Dates: start: 20000117
  2. KWELLS [Concomitant]
     Route: 048

REACTIONS (2)
  - NEOPLASM MALIGNANT [None]
  - ABDOMINAL NEOPLASM [None]
